FAERS Safety Report 25069538 (Version 1)
Quarter: 2025Q1

REPORT INFORMATION
  Report Type: Spontaneous
  Country: GB (occurrence: GB)
  Receive Date: 20250312
  Receipt Date: 20250312
  Transmission Date: 20250408
  Serious: Yes (Other)
  Sender: TEVA
  Company Number: None

PATIENT
  Age: 66 Year
  Sex: Female

DRUGS (1)
  1. ATORVASTATIN [Suspect]
     Active Substance: ATORVASTATIN
     Indication: Prophylaxis
     Dosage: DAILY DOSE: 20 MG  DAILY, DURATION: 3 DAYS
     Route: 065
     Dates: start: 20250226, end: 20250228

REACTIONS (6)
  - Paraesthesia oral [Recovered/Resolved]
  - Dizziness postural [Recovered/Resolved]
  - Fall [Recovered/Resolved]
  - Visual impairment [Recovered/Resolved]
  - Eye irritation [Recovered/Resolved]
  - Hypersensitivity [Recovered/Resolved]

NARRATIVE: CASE EVENT DATE: 20250228
